FAERS Safety Report 24218110 (Version 1)
Quarter: 2024Q3

REPORT INFORMATION
  Report Type: Spontaneous
  Country: US (occurrence: None)
  Receive Date: 20240816
  Receipt Date: 20240816
  Transmission Date: 20241016
  Serious: Yes (Hospitalization)
  Sender: Public
  Company Number: None

PATIENT
  Sex: Male

DRUGS (1)
  1. BENEFIX [Suspect]
     Active Substance: COAGULATION FACTOR IX RECOMBINANT HUMAN\ISOPROPYL ALCOHOL
     Dosage: FREQ: INFUSE TWO 3010 IU/VIALS (6020 TOTAL UNITS) INTRAVENOUSLY AS NEEDED FOR BLEEDING POST SURGERY.
     Route: 042

REACTIONS (2)
  - Appendicectomy [None]
  - Disease complication [None]
